FAERS Safety Report 6875551-0 (Version None)
Quarter: 2010Q2

REPORT INFORMATION
  Report Type: 
  Country: None (occurrence: None)
  Receive Date: 20100616
  Receipt Date: 20080506
  Transmission Date: 20101027
  Serious: Yes (Hospitalization)
  Sender: FDA-Public Use
  Company Number: S08-USA-01429-01

PATIENT
  Age: 90 Year
  Sex: Female
  Weight: 53.978 kg

DRUGS (4)
  1. NAMENDA [Suspect]
     Indication: DEMENTIA ALZHEIMER'S TYPE
     Dosage: 5 MG (5 MG, ONCEA A DAY), ORAL; 10 MG (5 MG, TWICE A DAY), ORAL; 15 MG 915 MG, ONCE A DAY), ORAL
     Route: 048
     Dates: start: 20070801, end: 20070101
  2. NAMENDA [Suspect]
     Indication: DEMENTIA ALZHEIMER'S TYPE
     Dosage: 20 MG (10 MG, TWICE A DAY), ORAL
     Route: 048
     Dates: start: 20070101, end: 20080211
  3. ARICEPT [Concomitant]
  4. PROAMATINE (MIDODRINE HYDROCHLORIDE) (MIDODRINE HYDROCHLORIDE) [Concomitant]

REACTIONS (3)
  - CONVULSION [None]
  - HYPERSOMNIA [None]
  - PAIN IN EXTREMITY [None]
